FAERS Safety Report 4530191-3 (Version None)
Quarter: 2004Q4

REPORT INFORMATION
  Report Type: 
  Country: None (occurrence: None)
  Receive Date: 20041215
  Receipt Date: 20041206
  Transmission Date: 20050328
  Serious: Yes (Life-Threatening, Other)
  Sender: FDA-Public Use
  Company Number: HQWYE317809NOV04

PATIENT
  Age: 79 Year
  Sex: Male

DRUGS (1)
  1. AMIODARONE (AMIODARONE, INJECTION) [Suspect]
     Indication: ATRIAL FIBRILLATION
     Dosage: 300 MG 1X PER 1 DAY; INTRAVENOUS
     Route: 042
     Dates: start: 20041024, end: 20041024

REACTIONS (2)
  - LOSS OF CONSCIOUSNESS [None]
  - URINARY INCONTINENCE [None]
